FAERS Safety Report 15834839 (Version 1)
Quarter: 2019Q1

REPORT INFORMATION
  Report Type: Report from Study
  Country: None (occurrence: FR)
  Receive Date: 20190116
  Receipt Date: 20190116
  Transmission Date: 20190417
  Serious: Yes (Other)
  Sender: FDA-Public Use
  Company Number: FR-BAUSCH-BL-2019-001257

PATIENT
  Age: 78 Year
  Sex: Male

DRUGS (6)
  1. BRIMONIDINE [Suspect]
     Active Substance: BRIMONIDINE TARTRATE
     Indication: OPEN ANGLE GLAUCOMA
     Route: 047
  2. DEXAMETHASONE/NEOMYCIN [Concomitant]
     Indication: OPEN ANGLE GLAUCOMA
     Route: 047
  3. TIMOLOL, DORZOLAMIDE [Concomitant]
     Indication: OPEN ANGLE GLAUCOMA
     Route: 047
  4. PILOCARPINE. [Concomitant]
     Active Substance: PILOCARPINE
     Indication: OPEN ANGLE GLAUCOMA
     Route: 047
  5. ACETAZOLAMIDE. [Concomitant]
     Active Substance: ACETAZOLAMIDE
     Indication: OPEN ANGLE GLAUCOMA
     Route: 048
  6. LATANOPROST. [Concomitant]
     Active Substance: LATANOPROST
     Indication: OPEN ANGLE GLAUCOMA
     Route: 047

REACTIONS (6)
  - Intraocular pressure increased [Recovering/Resolving]
  - Ocular hyperaemia [Recovering/Resolving]
  - Condition aggravated [Recovering/Resolving]
  - Blepharitis [Recovering/Resolving]
  - Toxicity to various agents [Recovering/Resolving]
  - Drug hypersensitivity [Recovering/Resolving]
